FAERS Safety Report 17654440 (Version 1)
Quarter: 2020Q2

REPORT INFORMATION
  Report Type: Spontaneous
  Country: IT (occurrence: IT)
  Receive Date: 20200410
  Receipt Date: 20200410
  Transmission Date: 20200713
  Serious: Yes (Hospitalization)
  Sender: FDA-Public Use
  Company Number: IT-AUROBINDO-AUR-APL-2020-017273

PATIENT
  Age: 77 Year
  Sex: Male

DRUGS (2)
  1. RISPERIDONE. [Suspect]
     Active Substance: RISPERIDONE
     Indication: MENTAL DISORDER
     Dosage: 6 MILLIGRAM,TOTAL
     Route: 048
     Dates: start: 20200305
  2. DEPAKIN [Suspect]
     Active Substance: VALPROATE SODIUM
     Indication: MENTAL DISORDER
     Dosage: 2 GRAM,TOTAL
     Route: 048
     Dates: start: 20200305

REACTIONS (2)
  - Sopor [Recovering/Resolving]
  - Medication error [Recovering/Resolving]

NARRATIVE: CASE EVENT DATE: 20200305
